FAERS Safety Report 7484006-4 (Version None)
Quarter: 2011Q2

REPORT INFORMATION
  Report Type: 
  Country: None (occurrence: None)
  Receive Date: 20110509
  Receipt Date: 20110427
  Transmission Date: 20111010
  Serious: Yes (Other)
  Sender: FDA-Public Use
  Company Number: LEO-2011-00333

PATIENT
  Sex: Male

DRUGS (1)
  1. TACLONEX SCALP [Suspect]
     Indication: PSORIASIS
     Dosage: TOPICAL
     Route: 061
     Dates: start: 20100101, end: 20100101

REACTIONS (4)
  - FATIGUE [None]
  - DEPRESSION [None]
  - REBOUND PSORIASIS [None]
  - BLOOD POTASSIUM INCREASED [None]
